FAERS Safety Report 9665967 (Version 1)
Quarter: 2013Q4

REPORT INFORMATION
  Report Type: Spontaneous
  Country: BG (occurrence: BG)
  Receive Date: 20131104
  Receipt Date: 20131104
  Transmission Date: 20140711
  Serious: Yes (Death)
  Sender: FDA-Public Use
  Company Number: BG-ASTRAZENECA-2013SE80501

PATIENT
  Sex: Male

DRUGS (1)
  1. BRILIQUE [Suspect]
     Indication: ACUTE CORONARY SYNDROME
     Route: 048

REACTIONS (2)
  - Death [Fatal]
  - Therapy cessation [Unknown]
